FAERS Safety Report 10771265 (Version 1)
Quarter: 2015Q1

REPORT INFORMATION
  Report Type: Spontaneous
  Country: JP (occurrence: JP)
  Receive Date: 20150206
  Receipt Date: 20150206
  Transmission Date: 20150721
  Serious: Yes (Other)
  Sender: FDA-Public Use
  Company Number: JP-BAYER-2015-014162

PATIENT
  Age: 25 Year
  Sex: Female

DRUGS (4)
  1. ASVERIN (TIPEPIDINE HIBENZATE) [Concomitant]
     Active Substance: TIPEPIDINE HIBENZATE
     Dosage: UNK
     Route: 048
  2. AVELOX [Suspect]
     Active Substance: MOXIFLOXACIN HYDROCHLORIDE
     Indication: PHARYNGITIS
     Dosage: 400 MG, QD
     Route: 048
     Dates: start: 20150127, end: 20150127
  3. RELENZA [Concomitant]
     Active Substance: ZANAMIVIR
     Indication: INFLUENZA
     Dosage: UNK
     Route: 055
     Dates: start: 20150127
  4. CALONAL [Concomitant]
     Active Substance: ACETAMINOPHEN

REACTIONS (4)
  - Abdominal pain [Recovered/Resolved]
  - Melaena [Recovered/Resolved]
  - Loss of consciousness [Recovered/Resolved]
  - Diarrhoea [Recovered/Resolved]

NARRATIVE: CASE EVENT DATE: 20150127
